FAERS Safety Report 14784262 (Version 4)
Quarter: 2021Q3

REPORT INFORMATION
  Report Type: Report from Study
  Country: CA (occurrence: CA)
  Receive Date: 20180420
  Receipt Date: 20210729
  Transmission Date: 20211014
  Serious: Yes (Other)
  Sender: FDA-Public Use
  Company Number: PHHY2017CA192450

PATIENT
  Age: 54 Year
  Sex: Female

DRUGS (4)
  1. GILENYA [Suspect]
     Active Substance: FINGOLIMOD HYDROCHLORIDE
     Indication: RELAPSING-REMITTING MULTIPLE SCLEROSIS
     Dosage: UNK
     Route: 048
     Dates: start: 20121217
  2. CELEXA [Concomitant]
     Active Substance: CITALOPRAM HYDROBROMIDE
     Indication: PRODUCT USED FOR UNKNOWN INDICATION
     Dosage: UNK
     Route: 065
  3. ZOPICLONE [Concomitant]
     Active Substance: ZOPICLONE
     Indication: PRODUCT USED FOR UNKNOWN INDICATION
     Dosage: UNK
     Route: 065
  4. TRAZODON [Concomitant]
     Active Substance: TRAZODONE HYDROCHLORIDE
     Indication: PRODUCT USED FOR UNKNOWN INDICATION
     Dosage: UNK
     Route: 065

REACTIONS (17)
  - White blood cell count decreased [Unknown]
  - Dry eye [Unknown]
  - Anxiety [Unknown]
  - Back pain [Unknown]
  - Tooth abscess [Unknown]
  - Blepharospasm [Recovered/Resolved]
  - Breast pain [Unknown]
  - Dyspnoea [Unknown]
  - Dermatitis [Unknown]
  - Chest pain [Unknown]
  - Tooth infection [Unknown]
  - Cognitive disorder [Unknown]
  - Inflammation [Unknown]
  - Rash [Unknown]
  - Periorbital swelling [Unknown]
  - Abdominal discomfort [Unknown]
  - Lymphocytosis [Unknown]

NARRATIVE: CASE EVENT DATE: 2017
